FAERS Safety Report 4701808-5 (Version None)
Quarter: 2005Q2

REPORT INFORMATION
  Report Type: 
  Country: None (occurrence: None)
  Receive Date: 20050627
  Receipt Date: 20050614
  Transmission Date: 20051028
  Serious: Yes (Hospitalization)
  Sender: FDA-Public Use
  Company Number: 2005SP001183

PATIENT
  Age: 31 Year
  Sex: Female

DRUGS (8)
  1. LUNESTA [Suspect]
     Dosage: 1X; ORAL
     Route: 048
     Dates: start: 20050614
  2. TRANDOLAPRIL [Suspect]
     Dosage: IX,
     Dates: start: 20050614
  3. VERAPAMIL [Suspect]
     Dosage: IX;
     Dates: start: 20050614
  4. AVANDIA [Suspect]
     Dosage: IX,
     Dates: start: 20050614
  5. METFORMIN [Suspect]
     Dosage: IX;
     Dates: start: 20050614
  6. LASIX [Suspect]
     Dosage: IX,
     Dates: start: 20050614
  7. WELLBUTRIN XL [Suspect]
     Dosage: IX,
     Dates: start: 20050614
  8. ALCOHOL [Suspect]
     Dosage: IX;
     Dates: start: 20050614

REACTIONS (1)
  - MULTIPLE DRUG OVERDOSE [None]
